FAERS Safety Report 9266011 (Version 2)
Quarter: 2013Q2

REPORT INFORMATION
  Report Type: Report from Study
  Country: DE (occurrence: DE)
  Receive Date: 20130501
  Receipt Date: 20130523
  Transmission Date: 20140414
  Serious: Yes (Hospitalization)
  Sender: FDA-Public Use
  Company Number: DE-TEVA-402216USA

PATIENT
  Age: 82 Year
  Sex: Male

DRUGS (6)
  1. TREANDA [Suspect]
     Route: 042
     Dates: start: 20110118
  2. RITUXIMAB [Suspect]
     Route: 042
     Dates: start: 20110119
  3. LISINOPRIL [Concomitant]
     Dates: start: 1990
  4. FUROSEMID [Concomitant]
     Dates: start: 1990
  5. ALLOPURINOL [Concomitant]
     Dates: start: 1990
  6. FELODIPIN [Concomitant]
     Dates: start: 1990

REACTIONS (2)
  - Constipation [Recovered/Resolved]
  - Flatulence [Recovered/Resolved]
